FAERS Safety Report 10450851 (Version 1)
Quarter: 2014Q3

REPORT INFORMATION
  Report Type: Spontaneous
  Country: US (occurrence: US)
  Receive Date: 20140912
  Receipt Date: 20140912
  Transmission Date: 20150326
  Serious: Yes (Other)
  Sender: FDA-Public Use
  Company Number: US-BAYER-2014-131987

PATIENT
  Age: 40 Year
  Sex: Male
  Weight: 132 kg

DRUGS (2)
  1. ALKA-SELTZER PLUS SEVERE SINUS CONGESTION AND COUGH DAY AND NIGHT [Suspect]
     Active Substance: ACETAMINOPHEN\DEXTROMETHORPHAN HYDROBROMIDE\DOXYLAMINE SUCCINATE\PHENYLEPHRINE
     Indication: NASOPHARYNGITIS
     Dosage: 1 DF, AT NIGHT
     Route: 048
     Dates: start: 201408, end: 20140828
  2. ALKA-SELTZER PLUS SEVERE SINUS CONGESTION AND COUGH DAY AND NIGHT [Suspect]
     Active Substance: ACETAMINOPHEN\DEXTROMETHORPHAN HYDROBROMIDE\DOXYLAMINE SUCCINATE\PHENYLEPHRINE
     Indication: NASOPHARYNGITIS
     Dosage: 2 DF, OM
     Route: 048
     Dates: start: 201408, end: 20140828

REACTIONS (4)
  - Dysuria [Not Recovered/Not Resolved]
  - Bladder pain [Unknown]
  - Urinary retention [Unknown]
  - Bladder disorder [Unknown]

NARRATIVE: CASE EVENT DATE: 20140828
